FAERS Safety Report 8529210 (Version 3)
Quarter: 2013Q2

REPORT INFORMATION
  Report Type: Spontaneous
  Country: US (occurrence: US)
  Receive Date: 20120425
  Receipt Date: 20130423
  Transmission Date: 20140414
  Serious: Yes (Other)
  Sender: FDA-Public Use
  Company Number: US-US-EMD SERONO, INC.-7127085

PATIENT
  Age: 66 Year
  Sex: Male

DRUGS (3)
  1. EGRIFTA [Suspect]
     Indication: LIPODYSTROPHY ACQUIRED
     Dates: start: 2010
  2. EGRIFTA [Suspect]
     Dates: start: 201204
  3. LIPITOR [Concomitant]
     Indication: BLOOD CHOLESTEROL

REACTIONS (6)
  - Insulin-like growth factor increased [Recovering/Resolving]
  - Cardiac pacemaker insertion [Unknown]
  - Embolism [Unknown]
  - Asthenia [Unknown]
  - Activities of daily living impaired [Unknown]
  - Weight decreased [Not Recovered/Not Resolved]
